FAERS Safety Report 8795756 (Version 1)
Quarter: 2012Q4

REPORT INFORMATION
  Report Type: 
  Country: FR (occurrence: FR)
  Receive Date: 20120919
  Receipt Date: 20120919
  Transmission Date: 20130627
  Serious: Yes (Disabling)
  Sender: FDA-Public Use
  Company Number: FR-ASTRAZENECA-2012SE71248

PATIENT
  Age: 64 Year
  Sex: Male

DRUGS (2)
  1. CRESTOR [Suspect]
     Indication: HYPERCHOLESTEROLAEMIA
     Route: 048
  2. TAVANIC [Suspect]
     Indication: ANTIBIOTIC THERAPY
     Route: 048
     Dates: start: 20120814, end: 20120819

REACTIONS (1)
  - Tendon disorder [Not Recovered/Not Resolved]
